FAERS Safety Report 9296353 (Version 2)
Quarter: 2013Q4

REPORT INFORMATION
  Report Type: Report from Study
  Country: FR (occurrence: FR)
  Receive Date: 20130517
  Receipt Date: 20131021
  Transmission Date: 20140711
  Serious: Yes (Hospitalization, Disabling)
  Sender: FDA-Public Use
  Company Number: FR-CELGENEUS-056-21880-13042066

PATIENT
  Age: 65 Year
  Sex: Female
  Weight: 78 kg

DRUGS (28)
  1. REVLIMID [Suspect]
     Indication: PLASMA CELL MYELOMA
     Dosage: 25 MILLIGRAM
     Route: 048
     Dates: start: 20120307, end: 20120327
  2. REVLIMID [Suspect]
     Dosage: 25 MILLIGRAM
     Route: 048
     Dates: start: 20120430, end: 20120520
  3. REVLIMID [Suspect]
     Dosage: 25 MILLIGRAM
     Route: 048
     Dates: start: 20120820, end: 20120830
  4. REVLIMID [Suspect]
     Dosage: 25 MILLIGRAM
     Route: 048
     Dates: start: 20121001, end: 20121004
  5. CARFILZOMIB [Suspect]
     Indication: PLASMA CELL MYELOMA
     Dosage: 34 MILLIGRAM
     Route: 065
     Dates: start: 20120307, end: 20120308
  6. CARFILZOMIB [Suspect]
     Route: 065
     Dates: start: 20120314, end: 20120322
  7. CARFILZOMIB [Suspect]
     Route: 065
     Dates: start: 20120430, end: 20120515
  8. CARFILZOMIB [Suspect]
     Route: 065
     Dates: start: 20120820, end: 20120829
  9. CARFILZOMIB [Suspect]
     Route: 065
     Dates: start: 20121001, end: 20121002
  10. DEXAMETHASONE [Suspect]
     Indication: PLASMA CELL MYELOMA
     Route: 065
     Dates: start: 20120307, end: 20120328
  11. DEXAMETHASONE [Suspect]
     Route: 065
     Dates: start: 20120430, end: 20120521
  12. DEXAMETHASONE [Suspect]
     Route: 065
     Dates: start: 20120820, end: 20120827
  13. DEXAMETHASONE [Suspect]
     Route: 065
     Dates: start: 20121001, end: 20121001
  14. APROVEL [Concomitant]
     Indication: HYPERTENSION
     Dosage: 300 MILLIGRAM
     Route: 048
     Dates: start: 1980, end: 20130208
  15. CLAMOXYL [Concomitant]
     Indication: ANTIBIOTIC PROPHYLAXIS
     Dosage: 2 GRAM
     Route: 048
     Dates: start: 20120306, end: 20121119
  16. FUROSEMIDE [Concomitant]
     Indication: OEDEMA PERIPHERAL
     Route: 048
     Dates: start: 201204
  17. HEXAQUINE [Concomitant]
     Indication: MUSCLE SPASMS
     Route: 048
     Dates: start: 201205, end: 20130802
  18. HEXAQUINE [Concomitant]
     Route: 048
     Dates: start: 20120309
  19. INNOHEP [Concomitant]
     Indication: ANTICOAGULANT THERAPY
     Dosage: 12000 IU (INTERNATIONAL UNIT)
     Route: 058
     Dates: start: 20120306, end: 20130212
  20. INNOHEP [Concomitant]
     Indication: ANTIPLATELET THERAPY
     Route: 065
  21. LASILIX [Concomitant]
     Indication: HYPERTENSION
     Dosage: 40 MILLIGRAM
     Route: 048
     Dates: start: 1980, end: 20130208
  22. LOPERAMIDE [Concomitant]
     Indication: DIARRHOEA
     Route: 048
     Dates: start: 201204
  23. MAGNESIUM B6 [Concomitant]
     Indication: MUSCLE SPASMS
     Dosage: 3 TABLET
     Route: 048
     Dates: start: 201204
  24. PANTOPRAZOLE [Concomitant]
     Indication: GASTROOESOPHAGEAL REFLUX PROPHYLAXIS
     Dosage: 1 TABLET
     Route: 048
     Dates: start: 20120306
  25. PENTACARINAT [Concomitant]
     Indication: ANTIBIOTIC PROPHYLAXIS
     Route: 055
     Dates: start: 20120306
  26. UVEDOSE [Concomitant]
     Indication: VITAMIN SUPPLEMENTATION
     Route: 048
     Dates: start: 20120322
  27. ZELITREX [Concomitant]
     Indication: ANTIVIRAL PROPHYLAXIS
     Dosage: 1000 MILLIGRAM
     Route: 048
     Dates: start: 20120306
  28. ZOMETA [Concomitant]
     Indication: PROPHYLAXIS
     Route: 041
     Dates: start: 20120322

REACTIONS (1)
  - Rotator cuff syndrome [Recovered/Resolved]
